FAERS Safety Report 8881845 (Version 1)
Quarter: 2012Q4

REPORT INFORMATION
  Report Type: 
  Country: US (occurrence: US)
  Receive Date: 20121105
  Receipt Date: 20121105
  Transmission Date: 20130627
  Serious: Yes (Other)
  Sender: FDA-Public Use
  Company Number: US-BAYER-2012-114021

PATIENT
  Age: 32 Year
  Sex: Female

DRUGS (1)
  1. MIRENA [Suspect]
     Indication: CONTRACEPTION
     Dosage: 20 mcg/24hr, CONT
     Route: 015
     Dates: end: 20121022

REACTIONS (4)
  - Abdominal pain lower [None]
  - Haemorrhage in pregnancy [None]
  - Vaginal haemorrhage [None]
  - Pregnancy with contraceptive device [Not Recovered/Not Resolved]
